FAERS Safety Report 26100336 (Version 1)
Quarter: 2025Q4

REPORT INFORMATION
  Report Type: Spontaneous
  Country: GB (occurrence: GB)
  Receive Date: 20251128
  Receipt Date: 20251128
  Transmission Date: 20260117
  Serious: Yes (Hospitalization, Other)
  Sender: SUNOVION
  Company Number: GB-Gedeon Richter Plc.-2024_GR_000646

PATIENT

DRUGS (1)
  1. ESTRADIOL\NORETHINDRONE ACETATE\RELUGOLIX [Suspect]
     Active Substance: ESTRADIOL\NORETHINDRONE ACETATE\RELUGOLIX
     Indication: Product used for unknown indication

REACTIONS (2)
  - Haemorrhage [Unknown]
  - Haemoglobin decreased [Unknown]
